APPROVED DRUG PRODUCT: DEFERASIROX
Active Ingredient: DEFERASIROX
Strength: 90MG
Dosage Form/Route: GRANULE;ORAL
Application: A214194 | Product #003
Applicant: AMNEAL EU LTD
Approved: Aug 2, 2021 | RLD: No | RS: No | Type: DISCN